FAERS Safety Report 9000608 (Version 1)
Quarter: 2013Q1

REPORT INFORMATION
  Report Type: Spontaneous
  Country: US (occurrence: US)
  Receive Date: 20130107
  Receipt Date: 20130107
  Transmission Date: 20140127
  Serious: No
  Sender: FDA-Public Use
  Company Number: US-PFIZER INC-2013004649

PATIENT
  Sex: Female

DRUGS (2)
  1. PROTONIX [Suspect]
     Dosage: 40MG ONCE A DAY
  2. PROTONIX [Suspect]
     Dosage: 20 MG, ONCE A DAY

REACTIONS (2)
  - Bone density abnormal [Unknown]
  - Hyperchlorhydria [Unknown]
